FAERS Safety Report 7860268-6 (Version None)
Quarter: 2011Q4

REPORT INFORMATION
  Report Type: 
  Country: None (occurrence: None)
  Receive Date: 20111027
  Receipt Date: 20111026
  Transmission Date: 20120403
  Serious: Yes (Other)
  Sender: FDA-Public Use
  Company Number: GB-ROCHE-803914

PATIENT
  Sex: Male
  Weight: 59 kg

DRUGS (6)
  1. MABTHERA [Suspect]
     Indication: RHEUMATOID ARTHRITIS
     Route: 042
     Dates: start: 20070525, end: 20070605
  2. METHOTREXATE [Concomitant]
     Indication: RHEUMATOID ARTHRITIS
     Route: 048
  3. BUTRANS [Concomitant]
  4. FOLIC ACID [Concomitant]
     Indication: RHEUMATOID ARTHRITIS
     Route: 065
  5. CELECOXIB [Concomitant]
  6. MABTHERA [Suspect]
     Route: 042
     Dates: start: 20110125, end: 20110208

REACTIONS (1)
  - EPILEPSY [None]
